FAERS Safety Report 7801459-X (Version None)
Quarter: 2011Q4

REPORT INFORMATION
  Report Type: 
  Country: None (occurrence: None)
  Receive Date: 20111005
  Receipt Date: 20110921
  Transmission Date: 20120403
  Serious: Yes (Hospitalization)
  Sender: FDA-Public Use
  Company Number: DAV-AE-MTX-050

PATIENT
  Sex: Female
  Weight: 105.6881 kg

DRUGS (5)
  1. GABAPENTIN [Concomitant]
  2. TRIAMCINOLONE ACETONIDE [Concomitant]
  3. METHOTREXATE [Suspect]
     Indication: RHEUMATOID ARTHRITIS
     Dosage: ORALLY
     Route: 048
     Dates: start: 20110411
  4. DIPHENHYDRAMINE HCL [Concomitant]
  5. LORATADINE [Concomitant]

REACTIONS (7)
  - VOMITING [None]
  - SKIN HYPERPIGMENTATION [None]
  - NAUSEA [None]
  - FATIGUE [None]
  - UPPER RESPIRATORY TRACT INFECTION [None]
  - RASH [None]
  - URTICARIA [None]
